FAERS Safety Report 25038667 (Version 1)
Quarter: 2025Q1

REPORT INFORMATION
  Report Type: Spontaneous
  Country: AT (occurrence: AT)
  Receive Date: 20250304
  Receipt Date: 20250304
  Transmission Date: 20250408
  Serious: Yes (Other)
  Sender: JOHNSON AND JOHNSON
  Company Number: AT-JNJFOC-20250257405

PATIENT
  Age: 73 Year
  Sex: Female

DRUGS (1)
  1. RYBREVANT [Suspect]
     Active Substance: AMIVANTAMAB-VMJW
     Indication: Non-small cell lung cancer
     Dates: start: 20240404

REACTIONS (2)
  - Thrombosis [Not Recovered/Not Resolved]
  - Skin toxicity [Not Recovered/Not Resolved]

NARRATIVE: CASE EVENT DATE: 20240430
